FAERS Safety Report 6429158-X (Version None)
Quarter: 2009Q4

REPORT INFORMATION
  Report Type: 
  Country: None (occurrence: None)
  Receive Date: 20091030
  Receipt Date: 20091022
  Transmission Date: 20100525
  Serious: Yes (Disabling, Other)
  Sender: FDA-Public Use
  Company Number: DSA_41876_2009

PATIENT
  Sex: Male

DRUGS (3)
  1. XENAZINE [Suspect]
     Indication: HUNTINGTON'S CHOREA
     Dosage: (12.5 MG QD ORAL) ; (12.5 MG BID ORAL)
     Route: 048
     Dates: start: 20090901, end: 20090101
  2. XENAZINE [Suspect]
     Indication: HUNTINGTON'S CHOREA
     Dosage: (12.5 MG QD ORAL) ; (12.5 MG BID ORAL)
     Route: 048
     Dates: start: 20090101, end: 20091001
  3. XENAZINE [Suspect]

REACTIONS (7)
  - ACTIVITIES OF DAILY LIVING IMPAIRED [None]
  - DISEASE PROGRESSION [None]
  - FALL [None]
  - HUNTINGTON'S CHOREA [None]
  - JAW DISORDER [None]
  - LIP DISORDER [None]
  - PARKINSONIAN GAIT [None]
